FAERS Safety Report 8207969-8 (Version None)
Quarter: 2012Q1

REPORT INFORMATION
  Report Type: 
  Country: None (occurrence: None)
  Receive Date: 20120314
  Receipt Date: 20120307
  Transmission Date: 20120608
  Serious: No
  Sender: FDA-Public Use
  Company Number: US-BAYER-2012-024539

PATIENT
  Age: 67 Year
  Sex: Male

DRUGS (4)
  1. CIPRODEX [Concomitant]
  2. AVELOX [Suspect]
     Indication: RESPIRATORY TRACT CONGESTION
     Dosage: UNK
     Route: 048
     Dates: start: 20120305, end: 20120307
  3. AVELOX [Suspect]
     Indication: EAR INFECTION
  4. AVELOX [Suspect]
     Indication: SINUSITIS

REACTIONS (2)
  - NAUSEA [None]
  - FEAR [None]
